FAERS Safety Report 25005747 (Version 1)
Quarter: 2025Q1

REPORT INFORMATION
  Report Type: Spontaneous
  Country: PE (occurrence: PE)
  Receive Date: 20250224
  Receipt Date: 20250224
  Transmission Date: 20250408
  Serious: Yes (Death)
  Sender: PFIZER
  Company Number: PE-PFIZER INC-PV202500021731

PATIENT
  Age: 27 Year
  Sex: Male

DRUGS (1)
  1. SOMATROPIN [Suspect]
     Active Substance: SOMATROPIN
     Route: 058
     Dates: start: 202410, end: 202411

REACTIONS (1)
  - Pneumonia [Fatal]
